FAERS Safety Report 9670183 (Version 1)
Quarter: 2013Q4

REPORT INFORMATION
  Report Type: Spontaneous
  Country: US (occurrence: US)
  Receive Date: 20131105
  Receipt Date: 20131105
  Transmission Date: 20140711
  Serious: No
  Sender: FDA-Public Use
  Company Number: US-BAUSCH-BL-2013-004620

PATIENT
  Age: 79 Year
  Sex: Female

DRUGS (2)
  1. LOTEPREDNOL ETABONATE OPHTHALMIC OINTMENT 0.5% [Suspect]
     Indication: EYE SWELLING
     Dosage: 1 RIBBON; DAILY; RIGHT EYE
     Route: 047
     Dates: start: 20130808, end: 20130809
  2. LOTEPREDNOL ETABONATE OPHTHALMIC OINTMENT 0.5% [Suspect]
     Dosage: 1 RIBBON; DAILY; LEFT EYE
     Route: 047
     Dates: start: 20130808, end: 20130809

REACTIONS (3)
  - Off label use [Recovered/Resolved]
  - Eye swelling [Recovered/Resolved]
  - Condition aggravated [Recovered/Resolved]
